FAERS Safety Report 12824223 (Version 2)
Quarter: 2016Q4

REPORT INFORMATION
  Report Type: Spontaneous
  Country: US (occurrence: US)
  Receive Date: 20161006
  Receipt Date: 20161020
  Transmission Date: 20170207
  Serious: No
  Sender: FDA-Public Use
  Company Number: US-ELI_LILLY_AND_COMPANY-US201610000504

PATIENT
  Age: 71 Year
  Sex: Male

DRUGS (13)
  1. OMEPRAZOLE. [Concomitant]
     Active Substance: OMEPRAZOLE
  2. PIOGLITAZONE. [Concomitant]
     Active Substance: PIOGLITAZONE
  3. ZETIA [Concomitant]
     Active Substance: EZETIMIBE
  4. FENOFIBRATE. [Concomitant]
     Active Substance: FENOFIBRATE
  5. TEMAZEPAM. [Concomitant]
     Active Substance: TEMAZEPAM
  6. HUMALOG MIX75/25 [Suspect]
     Active Substance: INSULIN LISPRO
     Dosage: 60 U, EACH EVENING
     Route: 065
  7. HUMALOG MIX75/25 [Suspect]
     Active Substance: INSULIN LISPRO
     Indication: DIABETES MELLITUS
     Dosage: 90 U, EACH MORNING
     Route: 065
     Dates: start: 20160916
  8. LANTUS [Concomitant]
     Active Substance: INSULIN GLARGINE
  9. HUMALOG MIX75/25 [Suspect]
     Active Substance: INSULIN LISPRO
     Dosage: 60 U, EACH EVENING
     Route: 065
     Dates: start: 20160916
  10. HUMALOG MIX75/25 [Suspect]
     Active Substance: INSULIN LISPRO
     Dosage: 90 U, EACH MORNING
     Route: 065
  11. ATORVASTATIN [Concomitant]
     Active Substance: ATORVASTATIN
  12. AMLODIPINE [Concomitant]
     Active Substance: AMLODIPINE BESYLATE
  13. NASONEX [Concomitant]
     Active Substance: MOMETASONE FUROATE

REACTIONS (3)
  - Injection site mass [Not Recovered/Not Resolved]
  - Injection site urticaria [Not Recovered/Not Resolved]
  - Injection site pain [Not Recovered/Not Resolved]

NARRATIVE: CASE EVENT DATE: 20160916
